FAERS Safety Report 4370818-2 (Version None)
Quarter: 2004Q2

REPORT INFORMATION
  Report Type: 
  Country: None (occurrence: None)
  Receive Date: 20040601
  Receipt Date: 20040521
  Transmission Date: 20050107
  Serious: Yes (Hospitalization)
  Sender: FDA-Public Use
  Company Number: 04P-056-0261680-00

PATIENT
  Age: 41 Year
  Sex: Female

DRUGS (2)
  1. VALPROATE SODIUM [Suspect]
     Indication: EPILEPSY
     Dates: start: 19970101
  2. LEVOTHYROXINE SODIUM [Concomitant]
     Indication: EPILEPSY
     Dates: start: 19970101

REACTIONS (2)
  - HYPOKINESIA [None]
  - TOXIC INDUCED ENCEPHALOPATHY [None]
